FAERS Safety Report 6097892-X (Version None)
Quarter: 2009Q1

REPORT INFORMATION
  Report Type: 
  Country: None (occurrence: None)
  Receive Date: 20090227
  Receipt Date: 20090218
  Transmission Date: 20090719
  Serious: Yes (Other)
  Sender: FDA-Public Use
  Company Number: PHHY2009MX04509

PATIENT
  Age: 69 Year
  Sex: Female

DRUGS (4)
  1. ACLASTA [Suspect]
     Indication: OSTEOPOROSIS
     Dosage: 5 MG/100 ML
     Dates: start: 20090203
  2. TENORETIC 100 [Concomitant]
     Indication: HYPERTENSION
     Dosage: 2 TABLET PER DAY
  3. CALTRATE [Concomitant]
     Indication: OSTEOPOROSIS
     Dosage: 1 TABLET PER DAY
  4. ADALAT [Concomitant]
     Dosage: 1 TABLET PER DAY

REACTIONS (18)
  - ANOREXIA [None]
  - BODY TEMPERATURE DECREASED [None]
  - BONE PAIN [None]
  - DIARRHOEA [None]
  - DIZZINESS [None]
  - FATIGUE [None]
  - GAIT DISTURBANCE [None]
  - LOSS OF CONSCIOUSNESS [None]
  - MUSCLE SPASMS [None]
  - NAUSEA [None]
  - PAIN [None]
  - PALLOR [None]
  - PULSE PRESSURE DECREASED [None]
  - PYREXIA [None]
  - SYNCOPE [None]
  - TACHYCARDIA [None]
  - VERTIGO [None]
  - VOMITING [None]
